FAERS Safety Report 5082022-3 (Version None)
Quarter: 2006Q3

REPORT INFORMATION
  Report Type: 
  Country: None (occurrence: None)
  Receive Date: 20060817
  Receipt Date: 20060807
  Transmission Date: 20061208
  Serious: Yes (Hospitalization)
  Sender: FDA-Public Use
  Company Number: PHBS2006US11937

PATIENT
  Age: 29 Year
  Sex: Female

DRUGS (1)
  1. TERBINAFINE [Suspect]
     Indication: SYSTEMIC MYCOSIS
     Dosage: 250 MG/DAY
     Route: 065

REACTIONS (6)
  - EPIDERMAL NECROSIS [None]
  - ERYTHEMA MULTIFORME [None]
  - LEUKOPENIA [None]
  - RASH ERYTHEMATOUS [None]
  - RASH GENERALISED [None]
  - SKIN ATROPHY [None]
